FAERS Safety Report 12608064 (Version 3)
Quarter: 2016Q3

REPORT INFORMATION
  Report Type: Report from Study
  Country: JP (occurrence: JP)
  Receive Date: 20160729
  Receipt Date: 20160812
  Transmission Date: 20161109
  Serious: Yes (Death, Hospitalization)
  Sender: FDA-Public Use
  Company Number: JP-EISAI MEDICAL RESEARCH-EC-2016-018863

PATIENT
  Age: 77 Year
  Sex: Female

DRUGS (18)
  1. DONEPEZIL. [Suspect]
     Active Substance: DONEPEZIL
     Indication: DEMENTIA WITH LEWY BODIES
     Dosage: 3 MG OR PLACEBO
     Route: 048
     Dates: start: 20160109, end: 20160122
  2. DONEPEZIL. [Suspect]
     Active Substance: DONEPEZIL
     Dosage: 3 MG OR 10 MG
     Route: 048
     Dates: start: 20160319, end: 20160401
  3. DONEPEZIL. [Suspect]
     Active Substance: DONEPEZIL
     Route: 048
     Dates: start: 20160430, end: 20160721
  4. CELECOX [Suspect]
     Active Substance: CELECOXIB
     Indication: PERIARTHRITIS
     Route: 048
     Dates: start: 20151127
  5. DEPROMEL [Concomitant]
     Active Substance: FLUVOXAMINE
  6. BIOFERMIN [Concomitant]
     Active Substance: BACILLUS SUBTILIS\LACTOBACILLUS ACIDOPHILUS\STREPTOCOCCUS FAECAIS
  7. REBAMIPIDE [Concomitant]
     Active Substance: REBAMIPIDE
  8. DONEPEZIL. [Suspect]
     Active Substance: DONEPEZIL
     Dosage: 5 MG OR 10 MG
     Route: 048
     Dates: start: 20160402, end: 20160429
  9. CELECOX [Suspect]
     Active Substance: CELECOXIB
     Indication: BACK PAIN
  10. MAGMITT [Concomitant]
     Active Substance: MAGNESIUM OXIDE
  11. SENNA [Concomitant]
     Active Substance: SENNA LEAF\SENNOSIDES\SENNOSIDES A AND B
  12. NIFEDIPINE. [Concomitant]
     Active Substance: NIFEDIPINE
  13. ALFACALCIDOL [Concomitant]
     Active Substance: ALFACALCIDOL
  14. RISEDRONATE NA [Concomitant]
     Active Substance: RISEDRONATE SODIUM
  15. AZUNOL [Concomitant]
     Active Substance: SODIUM GUALENATE
  16. DONEPEZIL. [Suspect]
     Active Substance: DONEPEZIL
     Dosage: 5 MG OR PLACEBO
     Route: 048
     Dates: start: 20160123, end: 20160219
  17. DONEPEZIL. [Suspect]
     Active Substance: DONEPEZIL
     Dosage: 10 MG OR PLACEBO
     Route: 048
     Dates: start: 20160220, end: 20160318
  18. DEPAS [Concomitant]
     Active Substance: ETIZOLAM

REACTIONS (3)
  - Spinal compression fracture [Not Recovered/Not Resolved]
  - Pulmonary embolism [Fatal]
  - Decreased appetite [Recovered/Resolved]

NARRATIVE: CASE EVENT DATE: 20160720
